FAERS Safety Report 8437478-2 (Version None)
Quarter: 2012Q2

REPORT INFORMATION
  Report Type: 
  Country: None (occurrence: None)
  Receive Date: 20120614
  Receipt Date: 20120330
  Transmission Date: 20120825
  Serious: No
  Sender: FDA-Public Use
  Company Number: US-AMGEN-USASP2012020713

PATIENT
  Sex: Female

DRUGS (3)
  1. XGEVA [Suspect]
     Indication: METASTASES TO BONE
  2. PERCOCET [Concomitant]
  3. FEMARA [Concomitant]

REACTIONS (2)
  - CYSTITIS [None]
  - OEDEMA PERIPHERAL [None]
